FAERS Safety Report 12967728 (Version 1)
Quarter: 2016Q4

REPORT INFORMATION
  Report Type: Spontaneous
  Country: US (occurrence: US)
  Receive Date: 20161123
  Receipt Date: 20161123
  Transmission Date: 20170207
  Serious: No
  Sender: FDA-Public Use
  Company Number: US-TEVA-676759USA

PATIENT
  Age: 79 Year
  Sex: Female

DRUGS (1)
  1. MUPIROCIN. [Suspect]
     Active Substance: MUPIROCIN
     Indication: WOUND
     Route: 061
     Dates: start: 201607

REACTIONS (7)
  - Increased upper airway secretion [Unknown]
  - Pruritus genital [Recovered/Resolved]
  - Application site pain [Unknown]
  - Dysphonia [Unknown]
  - Lip swelling [Recovered/Resolved]
  - Pruritus [Recovered/Resolved]
  - Feeling abnormal [Unknown]

NARRATIVE: CASE EVENT DATE: 201607
